FAERS Safety Report 8245922-9 (Version None)
Quarter: 2012Q1

REPORT INFORMATION
  Report Type: 
  Country: None (occurrence: None)
  Receive Date: 20120327
  Receipt Date: 20110726
  Transmission Date: 20120608
  Serious: Yes (Hospitalization)
  Sender: FDA-Public Use
  Company Number: ADR-2011-10729

PATIENT
  Age: 10 Year
  Sex: Male

DRUGS (1)
  1. LIORESAL [Suspect]
     Indication: MUSCLE SPASTICITY
     Dosage: UNK MCG, DAILY, INTRATH
     Route: 037

REACTIONS (8)
  - OVERDOSE [None]
  - SOMNOLENCE [None]
  - MUSCLE TIGHTNESS [None]
  - FALL [None]
  - EYE MOVEMENT DISORDER [None]
  - LETHARGY [None]
  - RESPIRATORY RATE DECREASED [None]
  - HYPERSOMNIA [None]
